FAERS Safety Report 6986355-2 (Version None)
Quarter: 2010Q3

REPORT INFORMATION
  Report Type: 
  Country: None (occurrence: None)
  Receive Date: 20100915
  Receipt Date: 20090806
  Transmission Date: 20110219
  Serious: No
  Sender: FDA-Public Use
  Company Number: US-WYE-H09920109

PATIENT
  Sex: Female
  Weight: 97.61 kg

DRUGS (6)
  1. PRISTIQ [Suspect]
     Indication: DEPRESSION
     Route: 048
     Dates: start: 20090601
  2. CYANOCOBALAMIN [Concomitant]
  3. ADDERALL 10 [Concomitant]
  4. CELEBREX [Concomitant]
  5. OXYCODONE HCL [Concomitant]
  6. LEVOXYL [Concomitant]

REACTIONS (3)
  - CONSTIPATION [None]
  - OEDEMA PERIPHERAL [None]
  - SOMNOLENCE [None]
